FAERS Safety Report 26084987 (Version 1)
Quarter: 2025Q4

REPORT INFORMATION
  Report Type: Spontaneous
  Country: US (occurrence: US)
  Receive Date: 20251125
  Receipt Date: 20251125
  Transmission Date: 20260118
  Serious: No
  Sender: QILU ANTIBIOTICS PHARMACEUTICAL
  Company Number: US-QILU ANTIBIOTICS PHARMACEUTICAL CO. LTD-QLA-000045-2025

PATIENT
  Age: 30 Year
  Sex: Female
  Weight: 56 kg

DRUGS (1)
  1. CEFTRIAXONE [Suspect]
     Active Substance: CEFTRIAXONE
     Indication: Urinary tract infection
     Dosage: 1 G ADMINISTERED ONCE OVER 5 MINUTES
     Route: 042
     Dates: start: 20250529

REACTIONS (5)
  - Erythema [Unknown]
  - Dyspnoea [Unknown]
  - Nausea [Unknown]
  - Vomiting [Unknown]
  - Rash [Unknown]

NARRATIVE: CASE EVENT DATE: 20250101
